FAERS Safety Report 4348186-1 (Version None)
Quarter: 2004Q1

REPORT INFORMATION
  Report Type: 
  Country: None (occurrence: None)
  Receive Date: 20040325
  Receipt Date: 20040211
  Transmission Date: 20041129
  Serious: No
  Sender: FDA-Public Use
  Company Number: USA040259162

PATIENT
  Sex: Female

DRUGS (7)
  1. FORTEO [Suspect]
     Indication: OSTEOPOROSIS
     Dates: start: 20030101, end: 20040201
  2. FORTEO [Suspect]
     Indication: OSTEOPOROSIS
     Dates: start: 20030801, end: 20040201
  3. METHOTREXATE [Concomitant]
  4. MULTIVITAMIN [Concomitant]
  5. VITAMIN E [Concomitant]
  6. SYNTHROID [Concomitant]
  7. MOTRIN [Concomitant]

REACTIONS (4)
  - ABDOMINAL PAIN UPPER [None]
  - CONSTIPATION [None]
  - DIARRHOEA [None]
  - DYSPEPSIA [None]
